FAERS Safety Report 6301173-6 (Version None)
Quarter: 2009Q3

REPORT INFORMATION
  Report Type: 
  Country: None (occurrence: None)
  Receive Date: 20090807
  Receipt Date: 20090727
  Transmission Date: 20100115
  Serious: Yes (Other)
  Sender: FDA-Public Use
  Company Number: PHEH2009US08219

PATIENT
  Age: 75 Year
  Sex: Female

DRUGS (6)
  1. RECLAST [Suspect]
     Dosage: UNK
     Dates: start: 20090724
  2. TOPROL-XL [Concomitant]
     Indication: BLOOD PRESSURE
     Dosage: 75 MG, QD
     Route: 048
     Dates: start: 20070801
  3. DARVOCET-N 100 [Concomitant]
     Dosage: UNK
  4. ALLEGRA D 24 HOUR [Concomitant]
     Indication: HYPERSENSITIVITY
     Dosage: UNK
     Route: 048
     Dates: start: 20050101
  5. NASACORT [Concomitant]
     Indication: HYPERSENSITIVITY
     Dosage: 2 SPRAYS DAILY
     Route: 045
     Dates: start: 20080901
  6. VITAMIN D [Concomitant]
     Indication: VITAMIN D DEFICIENCY
     Dosage: 50000 U, QW
     Route: 048
     Dates: start: 20080901, end: 20090601

REACTIONS (11)
  - CHEST DISCOMFORT [None]
  - CHILLS [None]
  - GAIT DISTURBANCE [None]
  - HYPERHIDROSIS [None]
  - HYPOTENSION [None]
  - MALAISE [None]
  - NAUSEA [None]
  - PAIN [None]
  - PAIN IN JAW [None]
  - PYREXIA [None]
  - VOMITING [None]
